FAERS Safety Report 7682942-7 (Version None)
Quarter: 2011Q3

REPORT INFORMATION
  Report Type: 
  Country: None (occurrence: None)
  Receive Date: 20110815
  Receipt Date: 20110808
  Transmission Date: 20111222
  Serious: Yes (Other)
  Sender: FDA-Public Use
  Company Number: US-CEPHALON-2009001877

PATIENT
  Sex: Male
  Weight: 123 kg

DRUGS (1)
  1. PROVIGIL [Suspect]
     Indication: SLEEP APNOEA SYNDROME
     Route: 048
     Dates: start: 19990101, end: 19990101

REACTIONS (2)
  - LOSS OF CONSCIOUSNESS [None]
  - OBSESSIVE-COMPULSIVE DISORDER [None]
